FAERS Safety Report 25135239 (Version 1)
Quarter: 2025Q1

REPORT INFORMATION
  Report Type: Spontaneous
  Country: PH (occurrence: PH)
  Receive Date: 20250328
  Receipt Date: 20250328
  Transmission Date: 20250408
  Serious: Yes (Life-Threatening, Hospitalization)
  Sender: SANDOZ
  Company Number: PH-SCIGEN-2025SCI000858

PATIENT
  Age: 12 Year
  Sex: Male
  Weight: 40 kg

DRUGS (1)
  1. SOMATROPIN [Suspect]
     Active Substance: SOMATROPIN
     Indication: Product used for unknown indication
     Route: 065
     Dates: start: 20240411

REACTIONS (1)
  - Acute lymphocytic leukaemia [Not Recovered/Not Resolved]
